FAERS Safety Report 25251515 (Version 1)
Quarter: 2025Q2

REPORT INFORMATION
  Report Type: Spontaneous
  Country: GB (occurrence: GB)
  Receive Date: 20250429
  Receipt Date: 20250429
  Transmission Date: 20250716
  Serious: Yes (Other)
  Sender: AUROBINDO
  Company Number: GB-MHRA-ADR 20329875

PATIENT
  Age: 30 Year
  Sex: Male

DRUGS (4)
  1. PAROXETINE HYDROCHLORIDE [Suspect]
     Active Substance: PAROXETINE HYDROCHLORIDE
     Indication: Depression
     Dosage: 20 MILLIGRAM, ONCE A DAY
     Route: 065
  2. PAROXETINE HYDROCHLORIDE [Suspect]
     Active Substance: PAROXETINE HYDROCHLORIDE
     Indication: Psychotic disorder
  3. SERTINDOLE [Suspect]
     Active Substance: SERTINDOLE
     Indication: Psychotic disorder
     Route: 065
  4. SERTINDOLE [Suspect]
     Active Substance: SERTINDOLE
     Indication: Depression

REACTIONS (3)
  - Serotonin syndrome [Recovered/Resolved]
  - Drug withdrawal syndrome [Recovered/Resolved]
  - Drug interaction [Recovered/Resolved]
